FAERS Safety Report 15607409 (Version 1)
Quarter: 2018Q4

REPORT INFORMATION
  Report Type: Spontaneous
  Country: PL (occurrence: PL)
  Receive Date: 20181112
  Receipt Date: 20181112
  Transmission Date: 20190205
  Serious: Yes (Hospitalization)
  Sender: FDA-Public Use
  Company Number: PL-MYLANLABS-2018M1084426

PATIENT
  Age: 31 Year
  Sex: Female
  Weight: 80 kg

DRUGS (5)
  1. IBUPROFEN. [Suspect]
     Active Substance: IBUPROFEN
     Indication: PELVIC PAIN
     Dosage: 400 MG, TID
  2. DICLOFENAC [Suspect]
     Active Substance: DICLOFENAC
     Indication: PELVIC PAIN
     Dosage: 100 MG, BID
  3. METAMIZOLE [Suspect]
     Active Substance: METAMIZOLE
     Indication: PRODUCT USED FOR UNKNOWN INDICATION
     Dosage: UNK
  4. OXYCODONE [Suspect]
     Active Substance: OXYCODONE
     Indication: PRODUCT USED FOR UNKNOWN INDICATION
     Dosage: UNK
  5. PARACETAMOL/TRAMADOL [Suspect]
     Active Substance: ACETAMINOPHEN\TRAMADOL
     Indication: PELVIC PAIN
     Dosage: 3 DF, QD

REACTIONS (1)
  - Drug ineffective [Unknown]
